FAERS Safety Report 25715447 (Version 1)
Quarter: 2025Q3

REPORT INFORMATION
  Report Type: Spontaneous
  Country: US (occurrence: None)
  Receive Date: 20250821
  Receipt Date: 20250821
  Transmission Date: 20251020
  Serious: Yes (Hospitalization)
  Sender: FDA-CTU
  Company Number: None

PATIENT
  Sex: Female

DRUGS (3)
  1. TREMFYA [Suspect]
     Active Substance: GUSELKUMAB
     Indication: Crohn^s disease
     Route: 058
     Dates: start: 20250613
  2. TREMFYA [Suspect]
     Active Substance: GUSELKUMAB
     Indication: Rectal haemorrhage
  3. TREMFYA [Suspect]
     Active Substance: GUSELKUMAB
     Indication: Rectal haemorrhage

REACTIONS (2)
  - Crohn^s disease [None]
  - Insurance issue [None]
